FAERS Safety Report 23287107 (Version 1)
Quarter: 2023Q4

REPORT INFORMATION
  Report Type: Spontaneous
  Country: CN (occurrence: CN)
  Receive Date: 20231212
  Receipt Date: 20231212
  Transmission Date: 20240110
  Serious: Yes (Other)
  Sender: FDA-Public Use
  Company Number: CN-AstraZeneca-2023-67448

PATIENT

DRUGS (9)
  1. METOPROLOL SUCCINATE [Suspect]
     Active Substance: METOPROLOL SUCCINATE
     Indication: Cardiac failure acute
     Dosage: 47.5 MILLIGRAM, QD
     Route: 048
     Dates: start: 20231109, end: 20231116
  2. RAMIPRIL [Suspect]
     Active Substance: RAMIPRIL
     Indication: Hypertension
     Dosage: 5 MILLIGRAM, QD
     Route: 048
     Dates: start: 20231109, end: 20231116
  3. AMIODARONE [Suspect]
     Active Substance: AMIODARONE
     Indication: Cardiac failure acute
     Dosage: 0.2 GRAM, TID
     Route: 048
     Dates: start: 20231109, end: 20231116
  4. ATORVASTATIN [Suspect]
     Active Substance: ATORVASTATIN
     Indication: Cardiac failure acute
     Dosage: 20 MILLIGRAM, QD
     Route: 048
     Dates: start: 20231115, end: 20231116
  5. RABEPRAZOLE [Suspect]
     Active Substance: RABEPRAZOLE
     Indication: Product used for unknown indication
     Dosage: 20 MILLIGRAM, QD
     Route: 048
     Dates: start: 20231109, end: 20231116
  6. DAPAGLIFLOZIN [Concomitant]
     Active Substance: DAPAGLIFLOZIN
     Indication: Diabetes mellitus
     Dosage: 10 MILLIGRAM, QD
     Route: 048
  7. FUROSEMIDE [Concomitant]
     Active Substance: FUROSEMIDE
     Indication: Cardiac failure acute
     Dosage: 20 MILLIGRAM, QD
     Route: 048
     Dates: start: 20231109, end: 20231116
  8. GLUTAMIC [Concomitant]
     Indication: Product used for unknown indication
     Dosage: UNK
  9. SPIRONOLACTONE [Concomitant]
     Active Substance: SPIRONOLACTONE
     Indication: Cardiac failure acute
     Dosage: 20 MILLIGRAM, QD
     Route: 048
     Dates: start: 20231109, end: 20231116

REACTIONS (1)
  - Transaminases increased [Unknown]

NARRATIVE: CASE EVENT DATE: 20231116
